FAERS Safety Report 8784538 (Version 1)
Quarter: 2012Q4

REPORT INFORMATION
  Report Type: Spontaneous
  Country: US (occurrence: None)
  Receive Date: 20120907
  Receipt Date: 20120907
  Transmission Date: 20130627
  Serious: Yes (Other)
  Sender: FDA-Public Use
  Company Number: None

PATIENT
  Age: 53 Year
  Sex: Female
  Weight: 104.33 kg

DRUGS (1)
  1. SERTRALINE [Suspect]
     Route: 048
     Dates: start: 20120901, end: 20120902

REACTIONS (8)
  - Dizziness [None]
  - Fall [None]
  - Muscle strain [None]
  - Contusion [None]
  - Muscle strain [None]
  - Loss of consciousness [None]
  - Dysarthria [None]
  - Product quality issue [None]
